FAERS Safety Report 5959469-3 (Version None)
Quarter: 2008Q4

REPORT INFORMATION
  Report Type: 
  Country: None (occurrence: None)
  Receive Date: 20081117
  Receipt Date: 20081110
  Transmission Date: 20090506
  Serious: Yes (Death)
  Sender: FDA-Public Use
  Company Number: 2008JP003087

PATIENT
  Age: 9 Year
  Sex: Female
  Weight: 21 kg

DRUGS (16)
  1. FUNGUARD(MICAFUNGIN) INJECTION [Suspect]
     Indication: INFECTION PROPHYLAXIS
     Dosage: 1 MG/KG, UID/QD, IV DRIP
     Route: 041
     Dates: start: 20080419, end: 20080520
  2. PROGRAF [Suspect]
     Indication: INFECTION PROPHYLAXIS
     Dosage: 0.02 MG/KG,  /D, IV DRIP
     Route: 041
     Dates: start: 20080427, end: 20080520
  3. FLUDARA [Concomitant]
  4. ALKERAN [Concomitant]
  5. METHOTREXATE [Concomitant]
  6. NEUPOGEN [Concomitant]
  7. VENILON (IMMUNOGLOBULIN HUMAN NORMAL) INJECTION [Concomitant]
  8. FIRSTCIN (CEFOZOPRAN HYDROCHLORIDE) INJECTION [Concomitant]
  9. PREDNISOLONE [Concomitant]
  10. ALBUMINAR (ALBUMIN) INJECTION [Concomitant]
  11. PLASMA PROTEIN FRACTION (HUMAN) (PLASMA PROTEIN FRACTION (HUMAN) INJEC [Concomitant]
  12. SOLU-MEDROL [Concomitant]
  13. TAZOCIN (PIPERACILLIN SODIUM, TAZOBACTAM SODIUM) INJECTION [Concomitant]
  14. CEFTAZIDIME [Concomitant]
  15. INOVAN (DOPAMINE HYDROCHLORIDE) INJECTION [Concomitant]
  16. FUROSEMIDE (FUROSEMIDE) INJECTION [Concomitant]

REACTIONS (2)
  - CEREBRAL HAEMORRHAGE [None]
  - THROMBOTIC MICROANGIOPATHY [None]
